FAERS Safety Report 23646668 (Version 1)
Quarter: 2024Q1

REPORT INFORMATION
  Report Type: Spontaneous
  Country: JP (occurrence: JP)
  Receive Date: 20240319
  Receipt Date: 20240319
  Transmission Date: 20240409
  Serious: Yes (Other)
  Sender: FDA-Public Use
  Company Number: JP-RDY-LIT/JPN/24/0004508

PATIENT
  Age: 87 Year
  Sex: Female

DRUGS (2)
  1. AZACITIDINE [Suspect]
     Active Substance: AZACITIDINE
     Indication: Acute myeloid leukaemia
  2. VENETOCLAX [Suspect]
     Active Substance: VENETOCLAX
     Indication: Acute myeloid leukaemia

REACTIONS (5)
  - Cytopenia [Unknown]
  - Anaemia [Unknown]
  - Myelosuppression [Unknown]
  - Thrombocytopenia [Unknown]
  - Neutropenia [Unknown]
